FAERS Safety Report 24875974 (Version 1)
Quarter: 2025Q1

REPORT INFORMATION
  Report Type: Spontaneous
  Country: HU (occurrence: HU)
  Receive Date: 20250123
  Receipt Date: 20250123
  Transmission Date: 20250409
  Serious: Yes (Other)
  Sender: JOHNSON AND JOHNSON
  Company Number: HU-JNJFOC-20250123523

PATIENT
  Sex: Male

DRUGS (1)
  1. ZYTIGA [Suspect]
     Active Substance: ABIRATERONE ACETATE
     Indication: Hormone-dependent prostate cancer
     Route: 048
     Dates: start: 202307, end: 202312

REACTIONS (2)
  - Neutropenia [Unknown]
  - Dysgeusia [Unknown]
